FAERS Safety Report 6388540-X (Version None)
Quarter: 2009Q4

REPORT INFORMATION
  Report Type: 
  Country: None (occurrence: None)
  Receive Date: 20091005
  Receipt Date: 20090924
  Transmission Date: 20100525
  Serious: Yes (Other)
  Sender: FDA-Public Use
  Company Number: PL-ROCHE-656381

PATIENT
  Sex: Male
  Weight: 100 kg

DRUGS (4)
  1. PEGASYS [Suspect]
     Indication: DRUG USE FOR UNKNOWN INDICATION
     Dosage: PATIENT WAS TREATED IN THE PERIOD BETWEEN 2005 - 2006
     Route: 065
  2. PEGASYS [Suspect]
     Dosage: DOSE REDUCED.  PATIENT WAS GIVEN PEGASYS FOR 48 WEEKS.
     Route: 065
     Dates: end: 20060802
  3. COPEGUS [Concomitant]
     Dosage: FREQUENCY REPORTED AS: 2 X 3 TABL.
     Dates: start: 20050101
  4. COPEGUS [Concomitant]
     Dosage: DOSE WAS DECREASED.  PATIENT WAS GIVEN COPEGUS FOR 48 WEEKS.
     Dates: end: 20060101

REACTIONS (11)
  - ADMINISTRATION SITE REACTION [None]
  - DISEASE RECURRENCE [None]
  - DRUG ADMINISTRATION ERROR [None]
  - INFLAMMATION [None]
  - LEUKOPENIA [None]
  - MALAISE [None]
  - MUSCLE ATROPHY [None]
  - MUSCULOSKELETAL PAIN [None]
  - OEDEMA PERIPHERAL [None]
  - SKIN DISORDER [None]
  - THROMBOCYTOPENIA [None]
